FAERS Safety Report 10557011 (Version 1)
Quarter: 2014Q4

REPORT INFORMATION
  Report Type: Spontaneous
  Country: US (occurrence: None)
  Receive Date: 20141029
  Receipt Date: 20141029
  Transmission Date: 20150529
  Serious: Yes (Death)
  Sender: FDA-Public Use
  Company Number: INS201410-000226

PATIENT
  Age: 41 Year
  Sex: Female
  Weight: 60.69 kg

DRUGS (16)
  1. NORCO (HYDROCODONE, ACETAMINOPHEN) [Concomitant]
  2. EMEND [Concomitant]
     Active Substance: APREPITANT
  3. MARINOL [Concomitant]
     Active Substance: DRONABINOL
  4. ADVIL [Concomitant]
     Active Substance: IBUPROFEN
  5. FENTANYL. [Concomitant]
     Active Substance: FENTANYL
  6. CARAFATE (SUCRALFATE) [Concomitant]
  7. SANCUSO (GRANISETRON) [Concomitant]
  8. SUBSYS [Suspect]
     Active Substance: FENTANYL
     Indication: BREAKTHROUGH PAIN
     Dosage: 400 MCG, 1-2 SPRAYS Q 4 H
     Dates: start: 20141002
  9. DEXAMETHASONE. [Concomitant]
     Active Substance: DEXAMETHASONE
  10. LACTULOSE. [Concomitant]
     Active Substance: LACTULOSE
  11. ATIVAN [Concomitant]
     Active Substance: LORAZEPAM
  12. ONDANSETRON [Concomitant]
     Active Substance: ONDANSETRON
  13. TEMAZEPAM. [Concomitant]
     Active Substance: TEMAZEPAM
  14. OXYCODONE (OXYCODONE HCL) [Concomitant]
  15. SENOKOT (SENNOSIDES, DOCUSATE SODIUM) [Concomitant]
  16. WARFARIN (WARFARIN SODIUM) [Concomitant]

REACTIONS (1)
  - Malignant neoplasm progression [None]

NARRATIVE: CASE EVENT DATE: 20141007
